APPROVED DRUG PRODUCT: ARIPIPRAZOLE
Active Ingredient: ARIPIPRAZOLE
Strength: 1MG/ML
Dosage Form/Route: SOLUTION;ORAL
Application: A215595 | Product #001 | TE Code: AA
Applicant: CHARTWELL RX SCIENCES LLC
Approved: Oct 25, 2022 | RLD: No | RS: No | Type: RX